FAERS Safety Report 10367524 (Version 2)
Quarter: 2014Q4

REPORT INFORMATION
  Report Type: Spontaneous
  Country: IT (occurrence: None)
  Receive Date: 20140805
  Receipt Date: 20141119
  Transmission Date: 20150528
  Serious: Yes (Life-Threatening)
  Sender: FDA-Public Use
  Company Number: 2462194

PATIENT
  Age: 68 Year
  Sex: Female
  Weight: 140 kg

DRUGS (2)
  1. AVASTIN [Suspect]
     Active Substance: BEVACIZUMAB
     Indication: BREAST CANCER METASTATIC
     Dosage: 1 DF DOSAGE FORM, CYCLICAL, INTRAVENOUS
     Route: 042
     Dates: start: 20140516, end: 20140613
  2. PACLITAXEL. [Suspect]
     Active Substance: PACLITAXEL
     Indication: BREAST CANCER METASTATIC
     Route: 042
     Dates: start: 20140516, end: 20140613

REACTIONS (7)
  - Hepatic failure [None]
  - Hypersensitivity [None]
  - Acute kidney injury [None]
  - Fall [None]
  - Humerus fracture [None]
  - Loss of consciousness [None]
  - Cyanosis [None]

NARRATIVE: CASE EVENT DATE: 20140613
